FAERS Safety Report 12049614 (Version 1)
Quarter: 2016Q1

REPORT INFORMATION
  Report Type: Spontaneous
  Country: AU (occurrence: None)
  Receive Date: 20160208
  Receipt Date: 20160208
  Transmission Date: 20160526
  Serious: Yes (Hospitalization)
  Sender: FDA-Public Use
  Company Number: None

PATIENT
  Age: 26 Year
  Sex: Female
  Weight: 70 kg

DRUGS (1)
  1. RITALIN [Suspect]
     Active Substance: METHYLPHENIDATE HYDROCHLORIDE
     Indication: NARCOLEPSY
     Dosage: I PILL 4X DAILY FOUR TIMES DAILY TAKEN BY MOUTH
     Route: 048
     Dates: start: 20151216, end: 20160206

REACTIONS (3)
  - Aphasia [None]
  - Hypoaesthesia [None]
  - Hypoaesthesia oral [None]

NARRATIVE: CASE EVENT DATE: 20160205
